FAERS Safety Report 22048935 (Version 1)
Quarter: 2023Q1

REPORT INFORMATION
  Report Type: Spontaneous
  Country: US (occurrence: None)
  Receive Date: 20230228
  Receipt Date: 20230228
  Transmission Date: 20230418
  Serious: No
  Sender: FDA-Public Use
  Company Number: None

PATIENT
  Sex: 0

DRUGS (1)
  1. DIAZEPAM [Suspect]
     Active Substance: DIAZEPAM

REACTIONS (8)
  - Personality change [None]
  - Abnormal behaviour [None]
  - Aggression [None]
  - Apathy [None]
  - Homeless [None]
  - Mental disorder [None]
  - Cognitive disorder [None]
  - Quality of life decreased [None]
